FAERS Safety Report 8911779 (Version 1)
Quarter: 2012Q4

REPORT INFORMATION
  Report Type: 
  Country: US (occurrence: US)
  Receive Date: 20121115
  Receipt Date: 20121115
  Transmission Date: 20130627
  Serious: Yes (Death, Hospitalization)
  Sender: FDA-Public Use
  Company Number: US-GLAXOSMITHKLINE-A0833521A

PATIENT
  Age: 65 Year
  Sex: Male

DRUGS (5)
  1. AVANDIA [Suspect]
     Indication: DIABETES MELLITUS
     Dosage: 8U Per day
     Route: 048
     Dates: start: 2005, end: 20080615
  2. AVANDAMET [Suspect]
     Indication: DIABETES MELLITUS
     Route: 048
  3. NORVASC [Concomitant]
  4. METFORMIN [Concomitant]
  5. HUMALOG [Concomitant]

REACTIONS (7)
  - Death [Fatal]
  - Cardiovascular disorder [Unknown]
  - Haemorrhagic stroke [Unknown]
  - Hemiplegia [Unknown]
  - Cardiac failure congestive [Unknown]
  - Pulmonary embolism [Unknown]
  - Acute respiratory failure [Unknown]
